FAERS Safety Report 6143992-5 (Version None)
Quarter: 2009Q2

REPORT INFORMATION
  Report Type: 
  Country: None (occurrence: None)
  Receive Date: 20090401
  Receipt Date: 20090325
  Transmission Date: 20091009
  Serious: Yes (Other)
  Sender: FDA-Public Use
  Company Number: 2008SP003946

PATIENT
  Sex: Female

DRUGS (3)
  1. NASONEX [Suspect]
     Indication: NASAL POLYPS
  2. ALVESCO [Suspect]
     Indication: ASTHMA
     Dosage: 200 MCG;QD;
     Dates: start: 20070301, end: 20070601
  3. FLOVENT [Concomitant]

REACTIONS (2)
  - ASTHMA [None]
  - CONDITION AGGRAVATED [None]
